FAERS Safety Report 24719203 (Version 1)
Quarter: 2024Q4

REPORT INFORMATION
  Report Type: Report from Study
  Country: US (occurrence: US)
  Receive Date: 20241210
  Receipt Date: 20241210
  Transmission Date: 20250115
  Serious: Yes (Other)
  Sender: BEIGENE
  Company Number: US-BEIGENE-BGN-2024-019832

PATIENT

DRUGS (1)
  1. BRUKINSA [Suspect]
     Active Substance: ZANUBRUTINIB
     Indication: Peripheral T-cell lymphoma unspecified
     Dosage: 320 MILLIGRAM, DAILY
     Route: 048
     Dates: start: 20240222

REACTIONS (4)
  - Blood pressure increased [Unknown]
  - Presyncope [Unknown]
  - Atrial tachycardia [Unknown]
  - Off label use [Unknown]

NARRATIVE: CASE EVENT DATE: 20240222
